FAERS Safety Report 20090262 (Version 1)
Quarter: 2021Q4

REPORT INFORMATION
  Report Type: Spontaneous
  Country: US (occurrence: None)
  Receive Date: 20211118
  Receipt Date: 20211118
  Transmission Date: 20220303
  Serious: Yes (Hospitalization)
  Sender: FDA-Public Use
  Company Number: None

PATIENT
  Age: 55 Year
  Sex: Male
  Weight: 98.55 kg

DRUGS (2)
  1. BAMLANIVIMAB [Suspect]
     Active Substance: BAMLANIVIMAB
     Indication: COVID-19
     Dates: start: 20211105, end: 20211105
  2. BAM [Concomitant]
     Dates: start: 20211105, end: 20211105

REACTIONS (3)
  - Acute respiratory failure [None]
  - Pulmonary embolism [None]
  - COVID-19 pneumonia [None]

NARRATIVE: CASE EVENT DATE: 20211112
